FAERS Safety Report 6262935-7 (Version None)
Quarter: 2009Q3

REPORT INFORMATION
  Report Type: 
  Country: None (occurrence: None)
  Receive Date: 20090708
  Receipt Date: 20090622
  Transmission Date: 20100115
  Serious: Yes (Other)
  Sender: FDA-Public Use
  Company Number: 2009BI020066

PATIENT
  Age: 53 Year

DRUGS (4)
  1. ZEVALIN [Suspect]
     Indication: NON-HODGKIN'S LYMPHOMA
  2. ZEVALIN [Suspect]
     Indication: STEM CELL TRANSPLANT
  3. FLUDARABINE      (CON.) [Concomitant]
  4. CYCLOSPORIN A (CON.) [Concomitant]

REACTIONS (4)
  - ACUTE GRAFT VERSUS HOST DISEASE IN INTESTINE [None]
  - CYTOMEGALOVIRUS INFECTION [None]
  - DIARRHOEA [None]
  - VOMITING [None]
